FAERS Safety Report 6848936-6 (Version None)
Quarter: 2010Q3

REPORT INFORMATION
  Report Type: 
  Country: None (occurrence: None)
  Receive Date: 20100716
  Receipt Date: 20070924
  Transmission Date: 20110219
  Serious: No
  Sender: FDA-Public Use
  Company Number: US-PFIZER INC-2007082097

PATIENT
  Sex: Female
  Weight: 53.636 kg

DRUGS (1)
  1. CHANTIX [Suspect]
     Indication: SMOKING CESSATION THERAPY
     Dates: start: 20070101

REACTIONS (4)
  - ABNORMAL DREAMS [None]
  - DEPRESSED MOOD [None]
  - INSOMNIA [None]
  - MUSCULOSKELETAL PAIN [None]
